FAERS Safety Report 4435424-X (Version None)
Quarter: 2004Q3

REPORT INFORMATION
  Report Type: 
  Country: None (occurrence: None)
  Receive Date: 20040826
  Receipt Date: 20040819
  Transmission Date: 20050211
  Serious: Yes (Life-Threatening)
  Sender: FDA-Public Use
  Company Number: 2002JP005468

PATIENT
  Age: 27 Year
  Sex: Female
  Weight: 39.1 kg

DRUGS (8)
  1. TACROLIMUS CAPSULES (TACROLIMUS CAPSULES) (TACROLIMUS) CAPSULE [Suspect]
     Indication: RENAL TRANSPLANT
     Dosage: BID, ORAL;  BID, ORAL;  INTRAVENOUS
     Route: 048
     Dates: start: 20020225, end: 20020227
  2. TACROLIMUS CAPSULES (TACROLIMUS CAPSULES) (TACROLIMUS) CAPSULE [Suspect]
     Indication: RENAL TRANSPLANT
     Dosage: BID, ORAL;  BID, ORAL;  INTRAVENOUS
     Route: 048
     Dates: start: 20020227, end: 20020304
  3. TACROLIMUS CAPSULES (TACROLIMUS CAPSULES) (TACROLIMUS) CAPSULE [Suspect]
     Indication: RENAL TRANSPLANT
     Dosage: BID, ORAL;  BID, ORAL;  INTRAVENOUS
     Route: 048
     Dates: start: 20020304, end: 20040324
  4. PREDNISOLONE [Suspect]
     Dates: start: 20020301
  5. CELLCEPT [Suspect]
     Dosage: 1000 MG, ORAL
     Route: 048
     Dates: start: 20020225, end: 20020626
  6. IMURAN [Concomitant]
  7. GASTER (FAMOTIDINE) [Concomitant]
  8. SULFAMETHOXAZOLE AND TRIMETHOPRIM [Concomitant]

REACTIONS (7)
  - ANOREXIA NERVOSA [None]
  - CYTOMEGALOVIRUS INFECTION [None]
  - DEPRESSION [None]
  - LABORATORY TEST ABNORMAL [None]
  - LYMPHOPROLIFERATIVE DISORDER [None]
  - PLASMACYTOMA [None]
  - URINARY TRACT INFECTION [None]
